FAERS Safety Report 7950729-3 (Version None)
Quarter: 2011Q4

REPORT INFORMATION
  Report Type: 
  Country: None (occurrence: None)
  Receive Date: 20111123
  Receipt Date: 20111108
  Transmission Date: 20120403
  Serious: Yes (Death, Hospitalization)
  Sender: FDA-Public Use
  Company Number: UTC-012161

PATIENT
  Age: 70 Year
  Sex: Female
  Weight: 79 kg

DRUGS (6)
  1. REMODULIN [Suspect]
     Indication: PULMONARY HYPERTENSION
     Dosage: 219.99 UG/KG (0.152 UG/KG, 1 IN 1 MIN) SUBCUTANEOUS
     Route: 058
     Dates: start: 20090224
  2. COUMADIN [Concomitant]
  3. OXYGEN [Concomitant]
  4. REVATIO [Concomitant]
  5. AMLODIPINE [Concomitant]
  6. TRACLEER [Concomitant]

REACTIONS (1)
  - BLOOD PRESSURE DECREASED [None]
